FAERS Safety Report 9969773 (Version 2)
Quarter: 2014Q1

REPORT INFORMATION
  Report Type: Spontaneous
  Country: JP (occurrence: JP)
  Receive Date: 20140306
  Receipt Date: 20140306
  Transmission Date: 20141002
  Serious: Yes (Death)
  Sender: FDA-Public Use
  Company Number: JP-JNJFOC-20140212928

PATIENT
  Age: 10 Year
  Sex: Male

DRUGS (8)
  1. FINIBAX [Suspect]
     Indication: URINARY TRACT INFECTION
     Route: 041
     Dates: start: 20140128, end: 20140204
  2. FINIBAX [Suspect]
     Indication: BACTERAEMIA
     Route: 041
     Dates: start: 20140128, end: 20140204
  3. NEXIUM [Suspect]
     Indication: PRODUCT USED FOR UNKNOWN INDICATION
     Route: 048
     Dates: start: 20140128
  4. MIYA BM [Suspect]
     Indication: PRODUCT USED FOR UNKNOWN INDICATION
     Route: 048
     Dates: start: 20140128
  5. RIKKUNSHITO HERBAL PREPARATION [Suspect]
     Indication: PRODUCT USED FOR UNKNOWN INDICATION
     Route: 048
     Dates: start: 20140128
  6. CHINESE HERBAL MEDICINE [Suspect]
     Indication: PRODUCT USED FOR UNKNOWN INDICATION
     Route: 048
     Dates: start: 20140128
  7. FEOSPAN Z [Concomitant]
     Indication: PRODUCT USED FOR UNKNOWN INDICATION
     Route: 041
     Dates: start: 20140128
  8. AMIPAREN [Concomitant]
     Indication: PARENTERAL NUTRITION
     Route: 041
     Dates: start: 20140128

REACTIONS (3)
  - Subarachnoid haemorrhage [Fatal]
  - Injury [Fatal]
  - Renal impairment [Not Recovered/Not Resolved]
